FAERS Safety Report 5648512-7 (Version None)
Quarter: 2008Q1

REPORT INFORMATION
  Report Type: 
  Country: None (occurrence: None)
  Receive Date: 20080131
  Receipt Date: 20071026
  Transmission Date: 20080703
  Serious: No
  Sender: FDA-Public Use
  Company Number: 2005PV000634

PATIENT
  Age: 42 Year
  Sex: Female
  Weight: 70.3 kg

DRUGS (12)
  1. EXENATIDE (EXENATIDE) PEN, DISPOSABLE [Suspect]
     Indication: TYPE 2 DIABETES MELLITUS
     Dosage: SEE IMAGE
     Route: 058
     Dates: start: 20050101, end: 20050101
  2. EXENATIDE (EXENATIDE) PEN, DISPOSABLE [Suspect]
     Indication: TYPE 2 DIABETES MELLITUS
     Dosage: SEE IMAGE
     Route: 058
     Dates: start: 20050619, end: 20050718
  3. EXENATIDE (EXENATIDE) PEN, DISPOSABLE [Suspect]
     Indication: TYPE 2 DIABETES MELLITUS
     Dosage: SEE IMAGE
     Route: 058
     Dates: start: 20050101
  4. EXENATIDE (EXENATIDE) PEN, DISPOSABLE [Suspect]
     Indication: TYPE 2 DIABETES MELLITUS
     Dosage: SEE IMAGE
     Route: 058
     Dates: start: 20050719
  5. EXENATIDE (EXENATIDE) PEN, DISPOSABLE [Suspect]
  6. FORTAMET (METFORMIN HYDROCHLORIDE) [Concomitant]
  7. AVANDIA [Concomitant]
  8. PRANDIN (DEFLAZACORT) [Concomitant]
  9. LEVOXYL [Concomitant]
  10. PRANDIN (DEFLAZACORT) [Concomitant]
  11. METFORMIN HCL [Concomitant]
  12. EXENATIDE (EXENATIDE) [Concomitant]

REACTIONS (4)
  - BLOOD GLUCOSE INCREASED [None]
  - INJECTION SITE PAIN [None]
  - NAUSEA [None]
  - WEIGHT DECREASED [None]
